FAERS Safety Report 4627057-7 (Version None)
Quarter: 2005Q1

REPORT INFORMATION
  Report Type: 
  Country: None (occurrence: None)
  Receive Date: 20050331
  Receipt Date: 20050317
  Transmission Date: 20050727
  Serious: Yes (Death)
  Sender: FDA-Public Use
  Company Number: 02100-USA-04-0063

PATIENT
  Age: 88 Year
  Sex: Female

DRUGS (1)
  1. PLETAL [Suspect]
     Dosage: 100 MG QD ORAL
     Route: 048
     Dates: start: 20000101, end: 20040203

REACTIONS (4)
  - CARDIAC FAILURE CONGESTIVE [None]
  - CHRONIC OBSTRUCTIVE PULMONARY DISEASE [None]
  - CORONARY ARTERY DISEASE [None]
  - HYPOXIA [None]
